FAERS Safety Report 5970295-1 (Version None)
Quarter: 2008Q4

REPORT INFORMATION
  Report Type: 
  Country: None (occurrence: None)
  Receive Date: 20081126
  Receipt Date: 20081119
  Transmission Date: 20090506
  Serious: Yes (Hospitalization)
  Sender: FDA-Public Use
  Company Number: GB-PFIZER INC-2008098815

PATIENT
  Age: 29 Year
  Sex: Female

DRUGS (9)
  1. CHAMPIX [Suspect]
     Indication: SMOKING CESSATION THERAPY
     Route: 048
     Dates: start: 20080903, end: 20080929
  2. ACETAMINOPHEN W/ CODEINE [Concomitant]
  3. DESMOPRESSIN ACETATE [Concomitant]
  4. DIAZEPAM [Concomitant]
  5. VALPROATE SODIUM [Concomitant]
  6. HALOPERIDOL [Concomitant]
  7. OMEPRAZOLE [Concomitant]
  8. PROCYCLIDINE HYDROCHLORIDE 2MG TAB [Concomitant]
  9. BENZHEXOL [Concomitant]

REACTIONS (2)
  - DEPRESSION [None]
  - INTENTIONAL SELF-INJURY [None]
